FAERS Safety Report 21362860 (Version 1)
Quarter: 2022Q3

REPORT INFORMATION
  Report Type: Other
  Country: LB (occurrence: LB)
  Receive Date: 20220922
  Receipt Date: 20220922
  Transmission Date: 20221027
  Serious: Yes (Other)
  Sender: FDA-Public Use
  Company Number: LB-002147023-NVSC2022LB206554

PATIENT
  Sex: Male
  Weight: 60 kg

DRUGS (1)
  1. LUCENTIS [Suspect]
     Active Substance: RANIBIZUMAB
     Indication: Retinal vein occlusion
     Dosage: 10 MILLIGRAM PER MILLILITRE (LEFT EYE) (TO BE CONTINUED)
     Route: 050
     Dates: start: 20201012, end: 20210930

REACTIONS (5)
  - Cataract [Recovered/Resolved]
  - Eye infection [Not Recovered/Not Resolved]
  - Eye disorder [Recovering/Resolving]
  - Intraocular pressure increased [Not Recovered/Not Resolved]
  - Eye pain [Not Recovered/Not Resolved]
